FAERS Safety Report 7132523-9 (Version None)
Quarter: 2010Q4

REPORT INFORMATION
  Report Type: 
  Country: None (occurrence: None)
  Receive Date: 20101202
  Receipt Date: 20101124
  Transmission Date: 20110411
  Serious: Yes (Hospitalization)
  Sender: FDA-Public Use
  Company Number: JP-ROCHE-744770

PATIENT
  Age: 9 Year
  Sex: Male

DRUGS (8)
  1. VALGANCICLOVIR HCL [Suspect]
     Indication: CYTOMEGALOVIRUS INFECTION
     Route: 048
     Dates: start: 20100709, end: 20100805
  2. VALGANCICLOVIR HCL [Suspect]
     Route: 048
     Dates: start: 20100906, end: 20100924
  3. SPRYCEL [Suspect]
     Route: 048
     Dates: start: 20100630
  4. PREDNISOLONE [Suspect]
     Route: 048
     Dates: start: 20100922
  5. BACTRIM [Concomitant]
     Route: 048
  6. FLUCONAZOLE [Concomitant]
     Route: 048
  7. MAGNESIUM OXIDE [Concomitant]
     Route: 048
  8. NEORAL [Concomitant]
     Route: 048

REACTIONS (4)
  - DIARRHOEA [None]
  - HAEMATOCHEZIA [None]
  - PANCYTOPENIA [None]
  - UPPER LIMB FRACTURE [None]
